FAERS Safety Report 5491831-8 (Version None)
Quarter: 2007Q4

REPORT INFORMATION
  Report Type: 
  Country: None (occurrence: None)
  Receive Date: 20071022
  Receipt Date: 20071010
  Transmission Date: 20080405
  Serious: Yes (Other)
  Sender: FDA-Public Use
  Company Number: US-BRISTOL-MYERS SQUIBB COMPANY-13861695

PATIENT
  Age: 9 Year
  Sex: Female

DRUGS (6)
  1. CARBOPLATIN [Suspect]
     Indication: RETINOBLASTOMA
  2. CARBOPLATIN [Suspect]
     Route: 057
  3. VINCRISTINE SULFATE [Suspect]
     Indication: RETINOBLASTOMA
  4. TENIPOSIDE [Suspect]
     Indication: RETINOBLASTOMA
  5. CYCLOSPORINE [Suspect]
     Indication: RETINOBLASTOMA
  6. RADIATION THERAPY [Concomitant]
     Indication: RETINOBLASTOMA

REACTIONS (1)
  - MYELOID LEUKAEMIA [None]
